FAERS Safety Report 4788986-7 (Version None)
Quarter: 2005Q4

REPORT INFORMATION
  Report Type: 
  Country: None (occurrence: None)
  Receive Date: 20051004
  Receipt Date: 20050926
  Transmission Date: 20060501
  Serious: Yes (Other)
  Sender: FDA-Public Use
  Company Number: SUS1-2005-00716

PATIENT
  Age: 66 Year
  Sex: Female
  Weight: 65.318 kg

DRUGS (10)
  1. PENTASA [Suspect]
     Indication: CROHN'S DISEASE
     Dosage: 4 G DAILY ORAL
     Route: 048
     Dates: start: 20050620
  2. ATENOLOL [Concomitant]
  3. DYAZIDE [Concomitant]
  4. TAZTIA XT [Concomitant]
  5. MEDROXYPROGESTERONE [Concomitant]
  6. ESTROPIPATE [Concomitant]
  7. HYDROXYZINE HCL [Concomitant]
  8. ASPIRIN [Concomitant]
  9. MULTIVITE (NICOTINAMIDE, RIBOFLAVIN, THIAMINE HYDROCHLORIDE, RETINOL, [Concomitant]
  10. B COMPLEX (NICOTINAMIDE, PYRIDOZINE HYDROCHLORIDE, RIBOFLAVIN, THIAMIN [Concomitant]

REACTIONS (3)
  - DRY MOUTH [None]
  - FLATULENCE [None]
  - PERIPHERAL SENSORY NEUROPATHY [None]
